FAERS Safety Report 15023555 (Version 1)
Quarter: 2018Q2

REPORT INFORMATION
  Report Type: Spontaneous
  Country: DE (occurrence: DE)
  Receive Date: 20180618
  Receipt Date: 20180618
  Transmission Date: 20180711
  Serious: Yes (Hospitalization)
  Sender: FDA-Public Use
  Company Number: DE-TEVA-2018-DE-908649

PATIENT
  Age: 70 Year
  Sex: Male

DRUGS (9)
  1. MELPERON [Suspect]
     Active Substance: MELPERONE
     Dosage: NK MG, 5-5-0-10
     Route: 065
  2. TAVOR [Concomitant]
     Dosage: REQUIREMENT
     Route: 060
  3. ABSTRAL 0.4MG [Concomitant]
     Dosage: REQUIREMENT
     Route: 065
  4. OXYCODONE HYDROCHLORIDE. [Suspect]
     Active Substance: OXYCODONE HYDROCHLORIDE
     Dosage: 1-1-1-0
     Route: 065
  5. METAMIZOL [Concomitant]
     Active Substance: METAMIZOLE SODIUM
     Dosage: 1-1-1-1
     Route: 065
  6. RISPERIDON [Concomitant]
     Active Substance: RISPERIDONE
     Dosage: 0.5-0-0-1
     Route: 065
  7. PANTOPRAZOL [Concomitant]
     Active Substance: PANTOPRAZOLE SODIUM
     Dosage: 40 MILLIGRAM DAILY;
     Route: 065
  8. ASS 100 [Concomitant]
     Active Substance: ASPIRIN
     Dosage: 100 MILLIGRAM DAILY;
     Route: 065
  9. AMINEURIN [Concomitant]
     Active Substance: AMITRIPTYLINE HYDROCHLORIDE
     Dosage: 100 MILLIGRAM DAILY;
     Route: 065

REACTIONS (4)
  - Decreased appetite [Unknown]
  - Weight decreased [Unknown]
  - Nausea [Unknown]
  - Vomiting [Unknown]
